FAERS Safety Report 4613214-2 (Version None)
Quarter: 2005Q1

REPORT INFORMATION
  Report Type: 
  Country: None (occurrence: None)
  Receive Date: 20050315
  Receipt Date: 20050302
  Transmission Date: 20050727
  Serious: Yes (Hospitalization)
  Sender: FDA-Public Use
  Company Number: 2005040816

PATIENT
  Age: 67 Year
  Sex: Female

DRUGS (2)
  1. ZIPRASIDONE (CAPS) (ZIPRASIDONE) [Suspect]
     Indication: ILL-DEFINED DISORDER
     Dosage: 80 MG (40 MG, 2 IN 1 D), ORAL
     Route: 048
  2. MEMANTINE (MEMANTINE) [Concomitant]

REACTIONS (2)
  - ARRHYTHMIA [None]
  - DYSPNOEA [None]
